FAERS Safety Report 15489322 (Version 1)
Quarter: 2018Q4

REPORT INFORMATION
  Report Type: Spontaneous
  Country: US (occurrence: US)
  Receive Date: 20181011
  Receipt Date: 20181011
  Transmission Date: 20190205
  Serious: Yes (Hospitalization)
  Sender: FDA-Public Use
  Company Number: None

PATIENT
  Age: 60 Year
  Sex: Female

DRUGS (5)
  1. ENBREL [Suspect]
     Active Substance: ETANERCEPT
     Indication: PSORIASIS
     Dosage: ?          OTHER FREQUENCY:Q WEEK;?
     Route: 058
     Dates: start: 20180208
  2. ARMOUR THYROID [Concomitant]
     Active Substance: THYROID, PORCINE
  3. ESTRADIOL 0.5MG [Concomitant]
  4. PROGESTERONE 100MG [Concomitant]
     Active Substance: PROGESTERONE
  5. LOSTARTAN/HCT 50-12.5 [Concomitant]

REACTIONS (3)
  - Product dose omission [None]
  - Psoriasis [None]
  - Rash [None]

NARRATIVE: CASE EVENT DATE: 20181010
